FAERS Safety Report 5377150-9 (Version None)
Quarter: 2007Q2

REPORT INFORMATION
  Report Type: 
  Country: None (occurrence: None)
  Receive Date: 20070629
  Receipt Date: 20070629
  Transmission Date: 20071010
  Serious: Yes (Hospitalization, Other)
  Sender: FDA-Public Use
  Company Number: None

PATIENT
  Age: 39 Year
  Sex: Female
  Weight: 63.5036 kg

DRUGS (2)
  1. AVELOX [Suspect]
     Indication: BRONCHITIS PNEUMOCOCCAL
     Dosage: SAMPLE PACKS 1 PER DAY
     Dates: start: 20070423, end: 20070501
  2. AVELOX [Suspect]
     Indication: PNEUMONIA
     Dosage: SAMPLE PACKS 1 PER DAY
     Dates: start: 20070423, end: 20070501

REACTIONS (14)
  - ABASIA [None]
  - ANOREXIA [None]
  - ASTHENIA [None]
  - DECREASED ACTIVITY [None]
  - DEHYDRATION [None]
  - DYSSTASIA [None]
  - FEELING ABNORMAL [None]
  - MUSCLE INJURY [None]
  - MUSCLE SPASMS [None]
  - NERVE INJURY [None]
  - PAIN [None]
  - PARAESTHESIA [None]
  - RASH [None]
  - VIRAL INFECTION [None]
